FAERS Safety Report 21314857 (Version 1)
Quarter: 2022Q3

REPORT INFORMATION
  Report Type: Spontaneous
  Country: FR (occurrence: FR)
  Receive Date: 20220909
  Receipt Date: 20220909
  Transmission Date: 20221026
  Serious: Yes (Congenital Anomaly, Other)
  Sender: FDA-Public Use
  Company Number: None

PATIENT

DRUGS (7)
  1. VALACYCLOVIR HYDROCHLORIDE [Suspect]
     Active Substance: VALACYCLOVIR HYDROCHLORIDE
     Indication: Opportunistic infection prophylaxis
     Dosage: 1000 MG, QD (500MG X2/DAY)
     Route: 064
     Dates: start: 20210715, end: 20220415
  2. PROPRANOLOL [Suspect]
     Active Substance: PROPRANOLOL HYDROCHLORIDE
     Indication: Sinus tachycardia
     Dosage: 40 MG, QD
     Route: 064
     Dates: start: 20210715, end: 20220415
  3. LEVOTHYROXINE [Suspect]
     Active Substance: LEVOTHYROXINE
     Indication: Hypothyroidism
     Dosage: 87.5 MG, QD
     Route: 064
     Dates: start: 20210715, end: 20220415
  4. PENICILLIN V [Suspect]
     Active Substance: PENICILLIN V
     Indication: Opportunistic infection prophylaxis
     Dosage: 2 MILLION IU, QD (1MU X 2 PER DAY)
     Route: 064
     Dates: start: 20210715, end: 20220415
  5. HYDROCORTISONE [Suspect]
     Active Substance: HYDROCORTISONE
     Indication: Graft versus host disease
     Dosage: 20 MG, QD (10MG X 2 PER DAY.)
     Route: 064
     Dates: start: 20210715, end: 20220415
  6. ESOMEPRAZOLE [Suspect]
     Active Substance: ESOMEPRAZOLE
     Indication: Duodenogastric reflux
     Dosage: 20 MG, QD (20MG X 1 PER DAY)
     Route: 064
     Dates: start: 20210715, end: 20220415
  7. RUXOLITINIB [Suspect]
     Active Substance: RUXOLITINIB
     Indication: Graft versus host disease
     Dosage: 10 MG, QD (5MG X 2 PER DAY.)
     Route: 064
     Dates: start: 20210715, end: 20210812

REACTIONS (3)
  - Oligohydramnios [Recovered/Resolved]
  - Foetal growth restriction [Recovering/Resolving]
  - Foetal exposure during pregnancy [Unknown]

NARRATIVE: CASE EVENT DATE: 20220415
